FAERS Safety Report 7480336-0 (Version None)
Quarter: 2011Q2

REPORT INFORMATION
  Report Type: 
  Country: None (occurrence: None)
  Receive Date: 20110512
  Receipt Date: 20110512
  Transmission Date: 20111010
  Serious: Yes (Life-Threatening, Hospitalization)
  Sender: FDA-Public Use
  Company Number: None

PATIENT
  Age: 29 Year
  Sex: Female
  Weight: 65.7716 kg

DRUGS (1)
  1. MIRENA [Suspect]
     Indication: CONTRACEPTION
     Dosage: GOOD FOR 5 YEARS
     Dates: start: 20100501, end: 20101101

REACTIONS (7)
  - ALOPECIA [None]
  - PREMATURE AGEING [None]
  - FEELING ABNORMAL [None]
  - INSOMNIA [None]
  - DEVICE BREAKAGE [None]
  - VISUAL ACUITY REDUCED [None]
  - AMNESIA [None]
